FAERS Safety Report 4308626-0 (Version None)
Quarter: 2004Q1

REPORT INFORMATION
  Report Type: 
  Country: None (occurrence: None)
  Receive Date: 20040227
  Receipt Date: 20040213
  Transmission Date: 20041129
  Serious: Yes (Other)
  Sender: FDA-Public Use
  Company Number: 204744

PATIENT
  Age: 13 Year
  Sex: Female
  Weight: 28.8 kg

DRUGS (8)
  1. NUTROPIN [Suspect]
     Indication: BODY HEIGHT BELOW NORMAL
     Dosage: 0.35 MG/KG, 1/WEEK, SUBCUTANEOUS; SEE IMAGE
     Route: 058
     Dates: start: 20011128, end: 20040210
  2. NUTROPIN [Suspect]
     Indication: BODY HEIGHT BELOW NORMAL
     Dosage: 0.35 MG/KG, 1/WEEK, SUBCUTANEOUS; SEE IMAGE
     Route: 058
     Dates: start: 19980911
  3. SYNTHROID [Concomitant]
  4. LUPRON [Concomitant]
  5. PERIACTIN [Concomitant]
  6. LANOXIN [Concomitant]
  7. VASOTEC [Concomitant]
  8. NEXIUM [Concomitant]

REACTIONS (4)
  - BONE MARROW TRANSPLANT [None]
  - METASTASES TO CENTRAL NERVOUS SYSTEM [None]
  - NEPHROBLASTOMA [None]
  - RECURRENT CANCER [None]
